FAERS Safety Report 9510774 (Version 5)
Quarter: 2013Q4

REPORT INFORMATION
  Report Type: Spontaneous
  Country: JP (occurrence: JP)
  Receive Date: 20130910
  Receipt Date: 20131118
  Transmission Date: 20140711
  Serious: Yes (Hospitalization)
  Sender: FDA-Public Use
  Company Number: JP-AMGEN-JPNSP2013062694

PATIENT
  Age: 59 Year
  Sex: Female
  Weight: 49 kg

DRUGS (1)
  1. ENBREL [Suspect]
     Indication: RHEUMATOID ARTHRITIS
     Dosage: 50 MG, FREQUENCY UNKNOWN
     Route: 058
     Dates: start: 20120702, end: 20120821

REACTIONS (2)
  - Pleural effusion [Recovered/Resolved]
  - Pleurisy [Recovered/Resolved]
